FAERS Safety Report 19846923 (Version 1)
Quarter: 2021Q3

REPORT INFORMATION
  Report Type: Spontaneous
  Country: US (occurrence: US)
  Receive Date: 20210917
  Receipt Date: 20210917
  Transmission Date: 20211014
  Serious: Yes (Hospitalization)
  Sender: FDA-Public Use
  Company Number: None

PATIENT
  Age: 55 Year
  Sex: Female

DRUGS (6)
  1. VIRTUSSIN AC [Concomitant]
     Active Substance: CODEINE PHOSPHATE\GUAIFENESIN
  2. TABRECTA [Suspect]
     Active Substance: CAPMATINIB
     Indication: BRAIN NEOPLASM MALIGNANT
  3. ELIQUIS [Concomitant]
     Active Substance: APIXABAN
  4. OXYCODONE [Concomitant]
     Active Substance: OXYCODONE
  5. TAGRISSO [Concomitant]
     Active Substance: OSIMERTINIB
  6. ONDANSETRON [Concomitant]
     Active Substance: ONDANSETRON

REACTIONS (1)
  - Hospitalisation [None]

NARRATIVE: CASE EVENT DATE: 20210916
